FAERS Safety Report 23940895 (Version 1)
Quarter: 2024Q2

REPORT INFORMATION
  Report Type: Spontaneous
  Country: US (occurrence: US)
  Receive Date: 20240605
  Receipt Date: 20240605
  Transmission Date: 20240716
  Serious: Yes (Other)
  Sender: FDA-Public Use
  Company Number: US-REGENERON PHARMACEUTICALS, INC.-2024-080323

PATIENT
  Sex: Female

DRUGS (3)
  1. EYLEA [Suspect]
     Active Substance: AFLIBERCEPT
     Indication: Neovascular age-related macular degeneration
     Dosage: UNK, MONTHLY, RIGHT EYE, FORMULATION: UNKNOWN
     Dates: start: 2021
  2. EYLEA [Suspect]
     Active Substance: AFLIBERCEPT
     Dosage: UNK, 10 TO 12 WEEKS, BOTH EYES, FORMULATION: UNKNOWN
  3. EYLEA [Suspect]
     Active Substance: AFLIBERCEPT
     Dosage: UNK, 10 TO 12 WEEKS, LEFT EYE, FORMULATION: UNKNOWN

REACTIONS (1)
  - Macular degeneration [Unknown]
